FAERS Safety Report 9953175 (Version 2)
Quarter: 2014Q1

REPORT INFORMATION
  Report Type: Spontaneous
  Country: PR (occurrence: PR)
  Receive Date: 20140304
  Receipt Date: 20140304
  Transmission Date: 20141002
  Serious: No
  Sender: FDA-Public Use
  Company Number: PR-ABBVIE-12P-131-0970995-00

PATIENT
  Age: 64 Year
  Sex: Female
  Weight: 67.65 kg

DRUGS (8)
  1. HUMIRA [Suspect]
     Indication: REITER^S SYNDROME
     Route: 058
     Dates: start: 20120906, end: 20121004
  2. HUMIRA [Suspect]
     Indication: REITER^S SYNDROME
     Route: 058
     Dates: start: 201211, end: 201212
  3. HUMIRA [Suspect]
     Indication: REITER^S SYNDROME
     Route: 058
     Dates: start: 201301, end: 201302
  4. HUMIRA [Suspect]
     Indication: REITER^S SYNDROME
     Route: 058
     Dates: start: 201302, end: 20130419
  5. PRILOSEC [Concomitant]
     Indication: HIATUS HERNIA
     Route: 048
  6. CARAFATE [Concomitant]
     Indication: HIATUS HERNIA
     Dosage: 10ML ONCE OR TWICE DAILY
     Route: 048
  7. VITAMIN D [Concomitant]
     Indication: ROUTINE HEALTH MAINTENANCE
     Route: 048
  8. CENTRUM SILVER [Concomitant]
     Indication: ROUTINE HEALTH MAINTENANCE
     Route: 048

REACTIONS (8)
  - Gingival injury [Recovering/Resolving]
  - Vulvovaginal discomfort [Recovered/Resolved]
  - Ocular hyperaemia [Recovered/Resolved]
  - Cough [Recovered/Resolved]
  - Cough [Recovered/Resolved]
  - Urinary tract infection [Recovered/Resolved]
  - Tooth abscess [Recovered/Resolved]
  - Haemoglobin decreased [Recovered/Resolved]
